FAERS Safety Report 11082086 (Version 2)
Quarter: 2015Q2

REPORT INFORMATION
  Report Type: Spontaneous
  Country: US (occurrence: US)
  Receive Date: 20150501
  Receipt Date: 20150601
  Transmission Date: 20150821
  Serious: No
  Sender: FDA-Public Use
  Company Number: US-GLAXOSMITHKLINE-US2015GSK058329

PATIENT
  Age: 59 Year
  Sex: Male
  Weight: 98.41 kg

DRUGS (7)
  1. FISH OIL [Concomitant]
     Active Substance: FISH OIL
  2. LOSARTAN [Concomitant]
     Active Substance: LOSARTAN
  3. DEXILANT [Concomitant]
     Active Substance: DEXLANSOPRAZOLE
  4. ZOCOR [Concomitant]
     Active Substance: SIMVASTATIN
  5. WELLBUTRIN XL [Suspect]
     Active Substance: BUPROPION HYDROCHLORIDE
     Indication: AMNESIA
     Dosage: 150 MG, QD
     Route: 048
     Dates: start: 20150403
  6. WELLBUTRIN XL [Suspect]
     Active Substance: BUPROPION HYDROCHLORIDE
     Dosage: 100 MG, QD
     Route: 048
  7. CIALIS [Concomitant]
     Active Substance: TADALAFIL

REACTIONS (2)
  - Off label use [Not Recovered/Not Resolved]
  - Blood pressure systolic increased [Not Recovered/Not Resolved]

NARRATIVE: CASE EVENT DATE: 20150403
